FAERS Safety Report 8080454-2 (Version None)
Quarter: 2012Q1

REPORT INFORMATION
  Report Type: 
  Country: None (occurrence: None)
  Receive Date: 20120130
  Receipt Date: 20120119
  Transmission Date: 20120608
  Serious: Yes (Hospitalization)
  Sender: FDA-Public Use
  Company Number: AR-TEVA-319672ISR

PATIENT
  Sex: Male

DRUGS (1)
  1. AURENE [Suspect]
     Dosage: 900 MILLIGRAM;
     Route: 048
     Dates: start: 20110530, end: 20110622

REACTIONS (1)
  - SPLENIC RUPTURE [None]
